FAERS Safety Report 6703509-0 (Version None)
Quarter: 2010Q2

REPORT INFORMATION
  Report Type: 
  Country: None (occurrence: None)
  Receive Date: 20100430
  Receipt Date: 20100419
  Transmission Date: 20101027
  Serious: Yes (Other)
  Sender: FDA-Public Use
  Company Number: PHHY2010CA24326

PATIENT
  Sex: Female

DRUGS (1)
  1. EXJADE [Suspect]
     Indication: MYELODYSPLASTIC SYNDROME
     Dosage: 1250 MG, QD

REACTIONS (5)
  - AMNESIA [None]
  - BLOOD IRON INCREASED [None]
  - FATIGUE [None]
  - HYPERSOMNIA [None]
  - URINARY TRACT INFECTION [None]
